FAERS Safety Report 5284799-0 (Version None)
Quarter: 2007Q1

REPORT INFORMATION
  Report Type: 
  Country: None (occurrence: None)
  Receive Date: 20061229
  Receipt Date: 20060719
  Transmission Date: 20070707
  Serious: Yes (Death)
  Sender: FDA-Public Use
  Company Number: PHEH2006US09122

PATIENT
  Age: 37 Year
  Sex: Female

DRUGS (3)
  1. CLOZARIL [Suspect]
     Dosage: 1000 MG, QD, ORAL
     Route: 048
     Dates: start: 19980805, end: 20060707
  2. RISPERDAL [Concomitant]
  3. DEPAKOTE [Concomitant]

REACTIONS (8)
  - DELUSION [None]
  - FEELINGS OF WORTHLESSNESS [None]
  - GRANULOCYTE COUNT INCREASED [None]
  - INJURY [None]
  - LYMPHOCYTE COUNT INCREASED [None]
  - MEAN CELL HAEMOGLOBIN INCREASED [None]
  - OVERDOSE [None]
  - RED BLOOD CELL COUNT INCREASED [None]
